FAERS Safety Report 8715267 (Version 2)
Quarter: 2012Q4

REPORT INFORMATION
  Report Type: 
  Country: US (occurrence: US)
  Receive Date: 20120809
  Receipt Date: 20120906
  Transmission Date: 20130627
  Serious: Yes (Hospitalization)
  Sender: FDA-Public Use
  Company Number: US-ALEXION PHARMACEUTICALS INC.-A201201416

PATIENT
  Age: 17 Year
  Sex: Female

DRUGS (12)
  1. SOLIRIS 300MG [Suspect]
     Indication: PAROXYSMAL NOCTURNAL HAEMOGLOBINURIA
     Dosage: 1200 mg, q2w
     Route: 042
  2. SOLIRIS 300MG [Suspect]
     Dosage: UNK
     Route: 042
     Dates: start: 2010
  3. LAMICTAL [Concomitant]
     Dosage: 400 mg, qd
     Route: 048
  4. TRAZODONE [Concomitant]
     Dosage: 200 mg, qd
     Route: 048
  5. COUMADIN [Concomitant]
     Dosage: 4 mg, qd
     Route: 048
  6. FOLIC ACID [Concomitant]
     Dosage: 1 mg, qd
     Route: 048
  7. ESOMEPRAZOLE [Concomitant]
     Dosage: 40 mg, qd
     Route: 048
  8. KLONOPIN [Concomitant]
     Dosage: 0.5 mg, prn
     Route: 048
  9. HYDROMORPHONE [Concomitant]
     Dosage: 4 mg, prn
     Route: 048
  10. ZOFRAN [Concomitant]
     Dosage: 4 mg, prn
     Route: 048
  11. BACLOFEN [Concomitant]
     Dosage: UNK, prn
     Route: 048
  12. AGESTIN [Concomitant]
     Dosage: 1 DF, qd

REACTIONS (1)
  - Viral infection [Recovered/Resolved]
